FAERS Safety Report 7261778-5 (Version None)
Quarter: 2011Q1

REPORT INFORMATION
  Report Type: 
  Country: None (occurrence: None)
  Receive Date: 20110130
  Receipt Date: 20101025
  Transmission Date: 20110831
  Serious: No
  Sender: FDA-Public Use
  Company Number: US-ABBOTT-10P-163-0681251-00

PATIENT
  Age: 66 Year
  Sex: Female

DRUGS (2)
  1. LIPITOR [Concomitant]
     Indication: PRODUCT USED FOR UNKNOWN INDICATION
  2. HUMIRA [Suspect]
     Indication: PSORIASIS
     Dates: start: 20081001

REACTIONS (4)
  - INCORRECT DOSE ADMINISTERED BY DEVICE [None]
  - INJECTION SITE URTICARIA [None]
  - DEVICE MALFUNCTION [None]
  - PSORIASIS [None]
